FAERS Safety Report 15364859 (Version 4)
Quarter: 2019Q1

REPORT INFORMATION
  Report Type: Report from Study
  Country: US (occurrence: US)
  Receive Date: 20180910
  Receipt Date: 20190109
  Transmission Date: 20190417
  Serious: No
  Sender: FDA-Public Use
  Company Number: PHEH2018US037034

PATIENT
  Age: 54 Year
  Sex: Female
  Weight: 70.3 kg

DRUGS (2)
  1. GLATOPA [Suspect]
     Active Substance: GLATIRAMER ACETATE
     Indication: MULTIPLE SCLEROSIS
     Dosage: 40 MG, TIW, ROTATES INJECTION SITES
     Route: 058
     Dates: start: 20180801
  2. GLATOPA [Suspect]
     Active Substance: GLATIRAMER ACETATE
     Dosage: UNK
     Route: 058
     Dates: start: 201812

REACTIONS (12)
  - Mobility decreased [Recovered/Resolved]
  - Injection site erythema [Unknown]
  - White matter lesion [Unknown]
  - Injection site swelling [Unknown]
  - Vision blurred [Recovered/Resolved]
  - Injection site pain [Not Recovered/Not Resolved]
  - Incorrect dose administered [Not Recovered/Not Resolved]
  - Injection site extravasation [Not Recovered/Not Resolved]
  - Concomitant disease aggravated [Unknown]
  - Confusional state [Recovered/Resolved]
  - Injection site warmth [Unknown]
  - Malaise [Not Recovered/Not Resolved]

NARRATIVE: CASE EVENT DATE: 20180822
